FAERS Safety Report 4659409-3 (Version None)
Quarter: 2005Q2

REPORT INFORMATION
  Report Type: 
  Country: None (occurrence: None)
  Receive Date: 20050511
  Receipt Date: 20050422
  Transmission Date: 20051028
  Serious: Yes (Hospitalization, Other)
  Sender: FDA-Public Use
  Company Number: DE-ABBOTT-05P-062-0298711-00

PATIENT
  Sex: Male
  Weight: 68 kg

DRUGS (5)
  1. KALETRA [Suspect]
     Indication: HIV INFECTION
     Dosage: 800/200 MG
     Route: 048
     Dates: start: 20050113, end: 20050316
  2. KALETRA [Suspect]
  3. COTRIMOXAZOL [Suspect]
     Indication: UNEVALUABLE EVENT
     Dosage: 960/160 MG
     Route: 048
  4. PROTHIPENDYL [Suspect]
     Indication: DRUG USE FOR UNKNOWN INDICATION
     Route: 048
     Dates: start: 20050312, end: 20050312
  5. LAMIVUDINE + ZIDOVUDINE [Concomitant]
     Indication: HIV INFECTION
     Route: 048
     Dates: start: 20050113, end: 20050316

REACTIONS (2)
  - EOSINOPHILIA [None]
  - STEVENS-JOHNSON SYNDROME [None]
